FAERS Safety Report 9520082 (Version 2)
Quarter: 2014Q1

REPORT INFORMATION
  Report Type: Spontaneous
  Country: US (occurrence: None)
  Receive Date: 20130305
  Receipt Date: 20140306
  Transmission Date: 20141002
  Serious: Yes (Other)
  Sender: FDA-Public Use
  Company Number: 163-21880-12072674

PATIENT
  Age: 88 Year
  Sex: Male
  Weight: 79.4 kg

DRUGS (18)
  1. REVLIMID (LENALIDOMIDE) (CAPSULES) [Suspect]
     Indication: PLASMA CELL MYELOMA
     Dosage: 15 MG, 21 IN 28 D, PO
     Route: 048
     Dates: start: 201101
  2. DEXAMETHASONE [Concomitant]
  3. TYLENOL PM [Concomitant]
  4. CLARITIN (LORATADINE) [Concomitant]
  5. CALCIUM + D3 (CALCIUM D3 ^STADA^) [Concomitant]
  6. ALPHA LIPOIC ACID (THIOTIC ACID) [Concomitant]
  7. LASIX (FUROSEMIDE) [Concomitant]
  8. LISINOPRIL [Concomitant]
  9. ACETAMINOPHEN (PARACETAMOL) [Concomitant]
  10. ACYCLOVIR (ACICLOVIR) (ACICLOVIR) [Concomitant]
  11. DORZOLAMIDE HCL (DORZOLAMIDE HYDROCHLORIDE) [Concomitant]
  12. LUMIGAN (BIMATOPROST) [Concomitant]
  13. MELATONIN [Concomitant]
  14. OXYGEN [Concomitant]
  15. SERTRALINE HCL (SERTRALINE HYDROCHLORIDE) [Concomitant]
  16. VITAMIN D (ERGOCALCIFEROL) [Concomitant]
  17. ZYRTEC (CETIRIZINE HYDROCHLORIDE) [Concomitant]
  18. AREDIA (PAMIDRONATE DISODIUM) [Concomitant]

REACTIONS (6)
  - Pharyngeal oedema [None]
  - Throat tightness [None]
  - Auricular swelling [None]
  - Cough [None]
  - Neuropathy peripheral [None]
  - Diarrhoea [None]
